FAERS Safety Report 8793218 (Version 2)
Quarter: 2013Q2

REPORT INFORMATION
  Report Type: Report from Study
  Country: US (occurrence: US)
  Receive Date: 20120918
  Receipt Date: 20130524
  Transmission Date: 20140414
  Serious: Yes (Death)
  Sender: FDA-Public Use
  Company Number: US-ROCHE-1123496

PATIENT
  Sex: Male

DRUGS (1)
  1. AVASTIN [Suspect]
     Indication: NEOPLASM MALIGNANT
     Route: 065

REACTIONS (8)
  - Death [Fatal]
  - Epistaxis [Unknown]
  - Back pain [Unknown]
  - Abdominal pain [Unknown]
  - Carbohydrate antigen 125 increased [Unknown]
  - Lymphadenopathy [Unknown]
  - Abdominal pain upper [Unknown]
  - Flank pain [Unknown]
